FAERS Safety Report 14499596 (Version 1)
Quarter: 2018Q1

REPORT INFORMATION
  Report Type: Spontaneous
  Country: US (occurrence: US)
  Receive Date: 20180207
  Receipt Date: 20180207
  Transmission Date: 20180509
  Serious: No
  Sender: FDA-Public Use
  Company Number: US-PERRIGO-17US025342

PATIENT
  Sex: Female

DRUGS (1)
  1. CETIRIZINE HYDROCHLORIDE. [Suspect]
     Active Substance: CETIRIZINE HYDROCHLORIDE
     Indication: SEASONAL ALLERGY
     Dosage: 10 MG, BID
     Route: 048
     Dates: start: 20170703

REACTIONS (3)
  - Inappropriate schedule of drug administration [Unknown]
  - Somnolence [Unknown]
  - Dry mouth [Unknown]

NARRATIVE: CASE EVENT DATE: 20170703
